FAERS Safety Report 25729148 (Version 3)
Quarter: 2025Q4

REPORT INFORMATION
  Report Type: Report from Study
  Country: US (occurrence: US)
  Receive Date: 20250827
  Receipt Date: 20251217
  Transmission Date: 20260118
  Serious: Yes (Other)
  Sender: ABBVIE
  Company Number: US-ABBVIE-6429281

PATIENT
  Sex: Male

DRUGS (2)
  1. RINVOQ [Suspect]
     Active Substance: UPADACITINIB
     Indication: Dermatitis atopic
     Route: 048
     Dates: start: 20231120
  2. RINVOQ [Suspect]
     Active Substance: UPADACITINIB
     Indication: Dermatitis atopic
     Route: 048
     Dates: start: 20241120

REACTIONS (8)
  - Coronary artery occlusion [Unknown]
  - Heart rate increased [Unknown]
  - Asthenia [Unknown]
  - Dyspnoea [Unknown]
  - Dizziness [Unknown]
  - Orthostatic hypotension [Unknown]
  - Blood sodium decreased [Unknown]
  - Cardiac dysfunction [Unknown]
